FAERS Safety Report 17027499 (Version 1)
Quarter: 2019Q4

REPORT INFORMATION
  Report Type: Spontaneous
  Country: CN (occurrence: CN)
  Receive Date: 20191113
  Receipt Date: 20191113
  Transmission Date: 20200122
  Serious: Yes (Other)
  Sender: FDA-Public Use
  Company Number: CN-BAUSCH-BL-2019-059972

PATIENT
  Age: 12 Year
  Sex: Male

DRUGS (1)
  1. TROPICAMIDE EYE DROPS [Suspect]
     Active Substance: TROPICAMIDE
     Indication: REFRACTION DISORDER
     Dosage: OCULAR ADMINISTRATION IN RIGHT EYE, EVERY 5 MINUTE
     Route: 047
     Dates: start: 20190715, end: 20190715

REACTIONS (1)
  - Ocular hypertension [Recovering/Resolving]

NARRATIVE: CASE EVENT DATE: 20190715
